FAERS Safety Report 8181620-8 (Version None)
Quarter: 2012Q1

REPORT INFORMATION
  Report Type: 
  Country: None (occurrence: None)
  Receive Date: 20120301
  Receipt Date: 20120301
  Transmission Date: 20120608
  Serious: Yes (Hospitalization)
  Sender: FDA-Public Use
  Company Number: None

PATIENT
  Sex: Female
  Weight: 19.7 kg

DRUGS (6)
  1. CYCLOPHOSPHAMIDE [Suspect]
     Dosage: 1690 MG
     Dates: end: 20111230
  2. MERCAPTOPURINE [Suspect]
     Dosage: 1500 MG
     Dates: end: 20120111
  3. METHOTREXATE [Suspect]
     Dosage: 48 MG
     Route: 037
     Dates: end: 20111222
  4. PEG-L-ASPARAGINASE (K-H) [Suspect]
     Dosage: 4075 UNIT
     Dates: end: 20120112
  5. VINCRISTINE SULFATE [Suspect]
     Dosage: 5.1 MG
     Dates: end: 20120119
  6. CYTARABINE [Suspect]
     Dosage: 1040 MG
     Dates: end: 20120108

REACTIONS (4)
  - RENAL IMPAIRMENT [None]
  - BLOOD PRESSURE INCREASED [None]
  - PANCREATITIS ACUTE [None]
  - CONTINUOUS HAEMODIAFILTRATION [None]
